FAERS Safety Report 18390165 (Version 3)
Quarter: 2021Q1

REPORT INFORMATION
  Report Type: Spontaneous
  Country: US (occurrence: US)
  Receive Date: 20201015
  Receipt Date: 20210125
  Transmission Date: 20210419
  Serious: Yes (Hospitalization, Other)
  Sender: FDA-Public Use
  Company Number: US-TEVA-2020-US-1837855

PATIENT
  Age: 67 Year
  Sex: Male

DRUGS (9)
  1. VALSARTAN/HYDROCHLOROTHIAZIDE MACLEODS [Suspect]
     Active Substance: HYDROCHLOROTHIAZIDE\VALSARTAN
     Indication: HYPERTENSION
     Dosage: VALSARTAN 160 MG/HYDROCHLOROTHIAZIDE 25 MG, VALSARTAN/HYDROCHLOROTHIAZIDE MACLEODS
     Route: 065
     Dates: start: 20160226, end: 20180507
  2. VALSARTAN/HYDROCHLOROTHIAZIDE AUROBINDO [Suspect]
     Active Substance: HYDROCHLOROTHIAZIDE\VALSARTAN
     Indication: HYPERTENSION
     Dosage: VALSARTAN 160 MG/HYDROCHLOROTHIAZIDE 25 MG
     Route: 065
     Dates: start: 20150822, end: 20151117
  3. LOVASTATIN. [Concomitant]
     Active Substance: LOVASTATIN
     Dosage: 40 MG
  4. METOPROLOL SUCCINATE ER [Concomitant]
     Active Substance: METOPROLOL SUCCINATE
     Dosage: 50 MG
  5. DIOVAN HCT [Suspect]
     Active Substance: HYDROCHLOROTHIAZIDE\VALSARTAN
     Indication: HYPERTENSION
     Dosage: VALSARTAN 160 MG/HYDROCHLOROTHIAZIDE 25 MG
     Route: 065
     Dates: start: 2011
  6. VALSARTAN W/HYDROCHLOROTHIAZIDE TEVA [Suspect]
     Active Substance: HYDROCHLOROTHIAZIDE\VALSARTAN
     Indication: HYPERTENSION
     Dosage: VALSARTAN 160 MG/HYDROCHLOROTHIAZIDE 25 MG
     Route: 065
     Dates: start: 20150312
  7. VALSARTAN/HYDROCHLOROTHIAZIDE ALEMBIC [Suspect]
     Active Substance: HYDROCHLOROTHIAZIDE\VALSARTAN
     Indication: HYPERTENSION
     Dosage: VALSARTAN 160 MG/HYDROCHLOROTHIAZIDE 25 MG
     Route: 065
     Dates: start: 20150606
  8. ATORVASTATIN [Concomitant]
     Active Substance: ATORVASTATIN
     Dosage: 20 MG
  9. VALSARTAN/HYDROCHLOROTHIAZIDE MYLAN [Suspect]
     Active Substance: HYDROCHLOROTHIAZIDE\VALSARTAN
     Indication: HYPERTENSION
     Dosage: VALSARTAN 160 MG/HYDROCHLOROTHIAZIDE 25 MG
     Route: 065
     Dates: start: 20121010, end: 20141216

REACTIONS (1)
  - Rectal cancer [Recovered/Resolved]
